FAERS Safety Report 9688436 (Version 1)
Quarter: 2013Q4

REPORT INFORMATION
  Report Type: Spontaneous
  Country: US (occurrence: None)
  Receive Date: 20131112
  Receipt Date: 20131112
  Transmission Date: 20140711
  Serious: No
  Sender: FDA-Public Use
  Company Number: 2013AP009580

PATIENT
  Age: 69 Year
  Sex: Female

DRUGS (3)
  1. AMLODIPINE BESYLATE TABLETS [Suspect]
     Indication: OVERDOSE
     Route: 048
  2. ATENOLOL [Suspect]
     Route: 048
  3. THIORIDAZINE [Suspect]
     Route: 048

REACTIONS (2)
  - Shock [None]
  - Overdose [None]
